FAERS Safety Report 4720977-4 (Version None)
Quarter: 2005Q3

REPORT INFORMATION
  Report Type: 
  Country: None (occurrence: None)
  Receive Date: 20050720
  Receipt Date: 20050708
  Transmission Date: 20060218
  Serious: Yes (Other)
  Sender: FDA-Public Use
  Company Number: 2005100096

PATIENT
  Age: 61 Year
  Sex: Male

DRUGS (3)
  1. AMLODIPINE [Suspect]
     Indication: HYPERTENSION
     Dosage: 5 MG (DAILY)
     Dates: start: 20050601
  2. CELECTOL [Concomitant]
  3. CORTANCYL (PREDNISONE) [Concomitant]

REACTIONS (3)
  - EYE DISORDER [None]
  - OPTIC NEURITIS [None]
  - VASCULAR RUPTURE [None]
